FAERS Safety Report 7569603-X (Version None)
Quarter: 2011Q2

REPORT INFORMATION
  Report Type: 
  Country: None (occurrence: None)
  Receive Date: 20110617
  Receipt Date: 20110603
  Transmission Date: 20111010
  Serious: Yes (Life-Threatening)
  Sender: FDA-Public Use
  Company Number: 950723

PATIENT
  Age: 81 Year
  Sex: Female
  Weight: 68 kg

DRUGS (1)
  1. PACLITAXEL [Suspect]
     Indication: PRODUCT USED FOR UNKNOWN INDICATION
     Dosage: 90 MG, 1 TIME, INTRAVENOUS DRIP
     Route: 041
     Dates: start: 20110309, end: 20110309

REACTIONS (5)
  - CARDIAC ARREST [None]
  - CYANOSIS [None]
  - TACHYCARDIA [None]
  - HYPERTENSION [None]
  - LOSS OF CONSCIOUSNESS [None]
